FAERS Safety Report 5520277-9 (Version None)
Quarter: 2007Q4

REPORT INFORMATION
  Report Type: 
  Country: None (occurrence: None)
  Receive Date: 20071117
  Receipt Date: 20071102
  Transmission Date: 20080405
  Serious: Yes (Hospitalization)
  Sender: FDA-Public Use
  Company Number: US-AMGEN-US244298

PATIENT
  Sex: Female
  Weight: 71.4 kg

DRUGS (12)
  1. SENSIPAR [Suspect]
     Indication: HYPERPARATHYROIDISM SECONDARY
     Route: 048
     Dates: start: 20050119
  2. NEPHRON FA [Concomitant]
     Dates: start: 20010305
  3. FOSRENOL [Concomitant]
     Dates: start: 20070620
  4. MYADEC [Concomitant]
  5. MECLIZINE [Concomitant]
     Dates: start: 20070703
  6. ZOCOR [Concomitant]
     Dates: start: 20070806, end: 20070808
  7. CLARITIN [Concomitant]
     Dates: start: 20060830
  8. HECTORAL [Concomitant]
     Dates: start: 20050630
  9. LESCOL [Concomitant]
     Dates: start: 20020626
  10. MAGNESIUM OXIDE [Concomitant]
     Dates: start: 20060726
  11. NIACIN [Concomitant]
     Dates: start: 20020415
  12. K-DUR 10 [Concomitant]
     Dates: start: 20070328

REACTIONS (3)
  - FALL [None]
  - PRESYNCOPE [None]
  - SKULL FRACTURED BASE [None]
